FAERS Safety Report 22028119 (Version 1)
Quarter: 2023Q1

REPORT INFORMATION
  Report Type: Spontaneous
  Country: US (occurrence: None)
  Receive Date: 20230223
  Receipt Date: 20230223
  Transmission Date: 20230418
  Serious: No
  Sender: FDA-Public Use
  Company Number: US-ROCHE-3091168

PATIENT
  Sex: Male

DRUGS (1)
  1. NUTROPIN AQ [Suspect]
     Active Substance: SOMATROPIN
     Indication: Hypothalamo-pituitary disorder
     Dosage: STRENGTH : 10 MG/ML
     Route: 058
     Dates: start: 20220315

REACTIONS (3)
  - Device dispensing error [Unknown]
  - Off label use [Unknown]
  - No adverse event [Unknown]
